FAERS Safety Report 8351435-6 (Version None)
Quarter: 2012Q2

REPORT INFORMATION
  Report Type: 
  Country: None (occurrence: None)
  Receive Date: 20120510
  Receipt Date: 20120509
  Transmission Date: 20120825
  Serious: Yes (Hospitalization)
  Sender: FDA-Public Use
  Company Number: DE-ROCHE-792010

PATIENT
  Sex: Female
  Weight: 74 kg

DRUGS (14)
  1. EPIRUBICIN HYDROCHLORIDE [Suspect]
     Indication: BREAST CANCER
     Dosage: TOATL DOSE: 161 MG, DATE OF LAST DOSE PRIOR TO SAE 26 NOV 2011
     Route: 042
  2. AMLODIPINE BESYLATE [Concomitant]
     Dates: start: 20101008, end: 20111101
  3. AVASTIN [Suspect]
     Indication: BREAST CANCER
     Dosage: TOTAL DOSE: 1110 MG
     Route: 042
  4. HERCEPTIN [Suspect]
     Dosage: MAINTAINCE DOSE.TOATL DOSE: 440 MG
     Route: 042
  5. FLUOROURACIL [Suspect]
     Indication: BREAST CANCER
     Dosage: TOTAL DOSE: 1030 MG
     Route: 042
  6. RAMIPRIL [Concomitant]
     Dates: start: 20101015, end: 20110623
  7. HERCEPTIN [Suspect]
     Indication: BREAST CANCER
     Dosage: ON DAY 1 OF CYCLE 1 ONLY. LOADING DOSE.
     Route: 042
  8. DOCETAXEL [Suspect]
     Indication: BREAST CANCER
     Dosage: TOTAL DOSE: 170 MG
     Route: 042
  9. RAMIPRIL [Concomitant]
     Dates: start: 20110724, end: 20111101
  10. TAMOXIFEN CITRATE [Concomitant]
     Dates: start: 20110113
  11. VALSARTAN [Concomitant]
     Dates: start: 20111209
  12. INDAPAMIDE AND PERINDOPRIL ERBUMINE [Suspect]
     Indication: PRODUCT USED FOR UNKNOWN INDICATION
     Dates: start: 20111101, end: 20111209
  13. CYCLOPHOSPHAMIDE [Suspect]
     Indication: BREAST CANCER
     Dosage: TOTAL DOSE: 1070 MG
     Route: 042
  14. TORSEMIDE [Concomitant]
     Dates: start: 20111209

REACTIONS (2)
  - ABDOMINAL PAIN UPPER [None]
  - PANCREATITIS [None]
